FAERS Safety Report 7825769-5 (Version None)
Quarter: 2011Q4

REPORT INFORMATION
  Report Type: 
  Country: None (occurrence: None)
  Receive Date: 20111019
  Receipt Date: 20111013
  Transmission Date: 20120403
  Serious: Yes (Hospitalization, Other)
  Sender: FDA-Public Use
  Company Number: PHHY2011KW87753

PATIENT

DRUGS (2)
  1. CALCIUM CARBONATE [Concomitant]
     Dosage: UNK UKN, UNK
  2. GILENYA [Suspect]
     Indication: RELAPSING-REMITTING MULTIPLE SCLEROSIS
     Dosage: 0.5 MG
     Route: 048

REACTIONS (4)
  - ROAD TRAFFIC ACCIDENT [None]
  - DIZZINESS [None]
  - LOSS OF CONSCIOUSNESS [None]
  - BRADYCARDIA [None]
